FAERS Safety Report 23480537 (Version 1)
Quarter: 2024Q1

REPORT INFORMATION
  Report Type: Spontaneous
  Country: US (occurrence: US)
  Receive Date: 20240205
  Receipt Date: 20240205
  Transmission Date: 20240410
  Serious: Yes (Hospitalization)
  Sender: FDA-Public Use
  Company Number: US-GLAXOSMITHKLINE-US2023182343

PATIENT
  Age: 53 Year
  Sex: Female
  Weight: 130 kg

DRUGS (9)
  1. ZEJULA [Suspect]
     Active Substance: NIRAPARIB
     Indication: Chemotherapy
     Dosage: 200 MG, QD
     Dates: start: 20230405, end: 20230815
  2. GABAPENTIN [Concomitant]
     Active Substance: GABAPENTIN
     Indication: Nerve injury
     Dosage: UNK, (900MG PER DAY, 300MG 3 X PER DAY)
     Dates: start: 20170105
  3. DULOXETINE [Concomitant]
     Active Substance: DULOXETINE
     Indication: Pain in extremity
     Dosage: UNK, (90MG PER DAY, ONE A DAY IN THE MORNING, TAKES ONE 30MG AND ONE 60MG)
     Dates: start: 20220107, end: 20230111
  4. NORTRIPTYLINE [Concomitant]
     Active Substance: NORTRIPTYLINE
     Indication: Nerve injury
     Dosage: 10 MG
  5. NORTRIPTYLINE [Concomitant]
     Active Substance: NORTRIPTYLINE
     Indication: Pain in extremity
  6. BUSPIRONE [Concomitant]
     Active Substance: BUSPIRONE HYDROCHLORIDE
     Indication: Anxiety disorder
     Dosage: 15 MG, TID
  7. OXYCODONE [Concomitant]
     Active Substance: OXYCODONE\OXYCODONE HYDROCHLORIDE
     Indication: Pain in extremity
     Dosage: 5 MG 4 X PER DAY
  8. MORPHINE [Concomitant]
     Active Substance: MORPHINE
     Indication: Pain in extremity
     Dosage: 90 MG, QD
     Dates: start: 20230112
  9. MORPHINE [Concomitant]
     Active Substance: MORPHINE
     Dosage: 15 MG, QD

REACTIONS (1)
  - Red blood cell count decreased [Unknown]
